FAERS Safety Report 10932427 (Version 1)
Quarter: 2015Q1

REPORT INFORMATION
  Report Type: Spontaneous
  Country: US (occurrence: None)
  Receive Date: 20150319
  Receipt Date: 20150319
  Transmission Date: 20150721
  Serious: Yes (Other)
  Sender: FDA-Public Use
  Company Number: None

PATIENT
  Age: 66 Year
  Sex: Male
  Weight: 65.77 kg

DRUGS (10)
  1. LISTERINE TOTAL CARE ZERO FRESH MINT [Suspect]
     Active Substance: SODIUM FLUORIDE
     Indication: SENSITIVITY OF TEETH
     Dates: start: 20150304, end: 20150317
  2. ZANTAC [Concomitant]
     Active Substance: RANITIDINE HYDROCHLORIDE
  3. ASPIRING [Concomitant]
     Active Substance: ASPIRIN
  4. GLAUCOMA EYE DROPS [Concomitant]
  5. CENTRUM [Concomitant]
     Active Substance: VITAMINS
  6. FISH OIL [Concomitant]
     Active Substance: FISH OIL
  7. OMEPRAZOL LEVOTHYROXINE [Concomitant]
  8. LISINOPRIL. [Concomitant]
     Active Substance: LISINOPRIL
  9. LISTERINE TOTAL CARE ZERO FRESH MINT [Suspect]
     Active Substance: SODIUM FLUORIDE
     Indication: DENTAL DISORDER PROPHYLAXIS
     Dates: start: 20150304, end: 20150317
  10. FLOMAX [Concomitant]
     Active Substance: TAMSULOSIN HYDROCHLORIDE

REACTIONS (2)
  - Ageusia [None]
  - Oral mucosal exfoliation [None]

NARRATIVE: CASE EVENT DATE: 20150304
